FAERS Safety Report 6732980-3 (Version None)
Quarter: 2010Q2

REPORT INFORMATION
  Report Type: 
  Country: None (occurrence: None)
  Receive Date: 20100517
  Receipt Date: 20100426
  Transmission Date: 20101027
  Serious: Yes (Other)
  Sender: FDA-Public Use
  Company Number: JPI-P-010454

PATIENT
  Age: 24 Year
  Sex: Female
  Weight: 81.6475 kg

DRUGS (6)
  1. XYREM [Suspect]
     Indication: CATAPLEXY
     Dosage: 6 GM (3 GM, 2 IN 1 D), ORAL 4.5 GM (2.25 GM, 2 IN 1 D) 7 GM (3.5 GM 2 IN 1 D)
     Route: 048
     Dates: start: 20040319, end: 20040601
  2. XYREM [Suspect]
     Indication: CATAPLEXY
     Dosage: 6 GM (3 GM, 2 IN 1 D), ORAL 4.5 GM (2.25 GM, 2 IN 1 D) 7 GM (3.5 GM 2 IN 1 D)
     Route: 048
     Dates: end: 20100331
  3. XYREM [Suspect]
     Indication: CATAPLEXY
     Dosage: 6 GM (3 GM, 2 IN 1 D), ORAL 4.5 GM (2.25 GM, 2 IN 1 D) 7 GM (3.5 GM 2 IN 1 D)
     Route: 048
     Dates: start: 20100228
  4. RABEPRAZOLE SODIUM [Concomitant]
  5. LISINOPRIL [Concomitant]
  6. ASPIRIN [Concomitant]

REACTIONS (6)
  - DYSGEUSIA [None]
  - EATING DISORDER [None]
  - GALLBLADDER DISORDER [None]
  - GASTROOESOPHAGEAL REFLUX DISEASE [None]
  - PAROSMIA [None]
  - VOMITING [None]
